FAERS Safety Report 7388343-3 (Version None)
Quarter: 2011Q2

REPORT INFORMATION
  Report Type: 
  Country: None (occurrence: None)
  Receive Date: 20110401
  Receipt Date: 20110317
  Transmission Date: 20111010
  Serious: Yes (Hospitalization)
  Sender: FDA-Public Use
  Company Number: PHHY2011EC23335

PATIENT
  Age: 68 Year
  Sex: Female

DRUGS (1)
  1. ACLASTA [Suspect]
     Indication: OSTEOPOROSIS
     Route: 042
     Dates: start: 20101106

REACTIONS (10)
  - HEADACHE [None]
  - HYPOCALCAEMIA [None]
  - VOMITING [None]
  - BONE PAIN [None]
  - PHOTOPHOBIA [None]
  - CONFUSIONAL STATE [None]
  - WHITE BLOOD CELL COUNT DECREASED [None]
  - PAIN [None]
  - DYSPNOEA [None]
  - FATIGUE [None]
